FAERS Safety Report 4533907-5 (Version None)
Quarter: 2004Q4

REPORT INFORMATION
  Report Type: 
  Country: None (occurrence: None)
  Receive Date: 20041202
  Receipt Date: 20040130
  Transmission Date: 20050328
  Serious: Yes (Other)
  Sender: FDA-Public Use
  Company Number: 357907

PATIENT
  Sex: Female

DRUGS (6)
  1. VALIUM [Suspect]
     Dosage: ORAL
     Route: 048
     Dates: start: 19840615
  2. EFFEXOR [Suspect]
     Dosage: ORAL
     Route: 048
     Dates: start: 20031205
  3. VICODIN [Concomitant]
  4. VASOTEC (ENALAPRILUM) [Concomitant]
  5. CELEBREX [Concomitant]
  6. TRAMADOL HCL [Concomitant]

REACTIONS (6)
  - DIARRHOEA [None]
  - DRUG WITHDRAWAL SYNDROME [None]
  - HOT FLUSH [None]
  - INSOMNIA [None]
  - MUSCLE TWITCHING [None]
  - NAUSEA [None]
